FAERS Safety Report 4589388-9 (Version None)
Quarter: 2005Q1

REPORT INFORMATION
  Report Type: 
  Country: None (occurrence: None)
  Receive Date: 20050216
  Receipt Date: 20050131
  Transmission Date: 20050727
  Serious: Yes (Hospitalization)
  Sender: FDA-Public Use
  Company Number: A01200500687

PATIENT
  Age: 78 Year
  Sex: Female

DRUGS (8)
  1. CLOPIDOGREL BISULFATE [Suspect]
     Dosage: 75 MG QD
     Route: 048
     Dates: start: 20040101
  2. CELECOXIB [Suspect]
     Indication: ARTHRITIS
     Dosage: 200 MG QD
     Route: 048
     Dates: start: 20041101, end: 20050103
  3. ALBUTEROL [Concomitant]
  4. QUININE SULFATE [Concomitant]
  5. COMBIVENT          (SALBUTAMOL + IPRATROPIUM) [Concomitant]
  6. SERETIDE                   (GALENIC /FLUTICASONE/SALMETEROL) [Concomitant]
  7. BETAHISTINE [Concomitant]
  8. CALCITRIOL [Concomitant]

REACTIONS (4)
  - ANAEMIA [None]
  - BARRETT'S OESOPHAGUS [None]
  - HAEMATEMESIS [None]
  - HIATUS HERNIA [None]
